FAERS Safety Report 6630279-7 (Version None)
Quarter: 2010Q1

REPORT INFORMATION
  Report Type: 
  Country: None (occurrence: None)
  Receive Date: 20100311
  Receipt Date: 20100222
  Transmission Date: 20100710
  Serious: Yes (Hospitalization)
  Sender: FDA-Public Use
  Company Number: B0639158A

PATIENT
  Sex: Male

DRUGS (1)
  1. CLAVAMOX [Suspect]
     Indication: TONSILLITIS
     Route: 048
     Dates: start: 20090401

REACTIONS (5)
  - EYELID OEDEMA [None]
  - LIP OEDEMA [None]
  - LOCALISED OEDEMA [None]
  - RASH GENERALISED [None]
  - RASH MACULO-PAPULAR [None]
